FAERS Safety Report 8297322-3 (Version None)
Quarter: 2012Q1

REPORT INFORMATION
  Report Type: 
  Country: None (occurrence: None)
  Receive Date: 20120322
  Receipt Date: 20111227
  Transmission Date: 20120608
  Serious: Yes (Hospitalization)
  Sender: FDA-Public Use
  Company Number: UTC-012436

PATIENT
  Age: 66 Year
  Sex: Male
  Weight: 136.4 kg

DRUGS (3)
  1. TYVASO [Suspect]
     Indication: CHRONIC OBSTRUCTIVE PULMONARY DISEASE
     Dosage: 72 MCG (18 MCG,4 IN 1 D),INHALATION
     Route: 055
     Dates: start: 20111103
  2. COUMADIN [Concomitant]
  3. ADCIRCA [Concomitant]

REACTIONS (1)
  - HAEMATOCHEZIA [None]
